FAERS Safety Report 11552300 (Version 1)
Quarter: 2015Q3

REPORT INFORMATION
  Report Type: Spontaneous
  Country: CA (occurrence: CA)
  Receive Date: 20150925
  Receipt Date: 20150925
  Transmission Date: 20151125
  Serious: Yes (Life-Threatening, Hospitalization)
  Sender: FDA-Public Use
  Company Number: CA-TEVA-596012ACC

PATIENT
  Age: 40 Year
  Sex: Female
  Weight: 66 kg

DRUGS (9)
  1. DIPHENHYDRAMINE. [Concomitant]
     Active Substance: DIPHENHYDRAMINE
  2. AMOXICILLIN. [Suspect]
     Active Substance: AMOXICILLIN
     Indication: ANTIBIOTIC PROPHYLAXIS
  3. AMOXICILLIN. [Suspect]
     Active Substance: AMOXICILLIN
     Indication: TYMPANOPLASTY
     Dosage: 1500 MILLIGRAM DAILY;
     Route: 048
  4. SULFATRIM [Suspect]
     Active Substance: SULFAMETHOXAZOLE\TRIMETHOPRIM
     Indication: ANTIBIOTIC PROPHYLAXIS
  5. CORTISONE [Concomitant]
     Active Substance: CORTISONE\HYDROCORTISONE
  6. CIPRODEX [Concomitant]
     Active Substance: CIPROFLOXACIN HYDROCHLORIDE\DEXAMETHASONE
  7. NYSTATIN. [Concomitant]
     Active Substance: NYSTATIN
  8. SULFATRIM [Suspect]
     Active Substance: SULFAMETHOXAZOLE\TRIMETHOPRIM
     Indication: TYMPANOPLASTY
     Dosage: 2 DOSAGE FORMS DAILY;
     Route: 048
  9. TOBRADEX OPHTHALMIC [Concomitant]

REACTIONS (9)
  - Eye discharge [Unknown]
  - Gastrointestinal mucosal disorder [Unknown]
  - Pyrexia [Unknown]
  - Chills [Unknown]
  - Dermatitis bullous [Unknown]
  - Genital disorder female [Unknown]
  - Toxic epidermal necrolysis [Unknown]
  - Headache [Unknown]
  - Rash maculo-papular [Unknown]
